FAERS Safety Report 10372989 (Version 3)
Quarter: 2020Q3

REPORT INFORMATION
  Report Type: Report from Study
  Country: US (occurrence: US)
  Receive Date: 20140808
  Receipt Date: 20140911
  Transmission Date: 20201104
  Serious: Yes (Hospitalization, Other)
  Sender: FDA-Public Use
  Company Number: US-JNJFOC-20130413285

PATIENT
  Age: 61 Year
  Sex: Male
  Weight: 77.3 kg

DRUGS (35)
  1. OXYCODONE [Concomitant]
     Active Substance: OXYCODONE
     Indication: HAEMATOMA
     Route: 048
     Dates: start: 20130405, end: 20130503
  2. OXYCODONE [Concomitant]
     Active Substance: OXYCODONE
     Indication: PAIN
     Route: 048
     Dates: start: 201304
  3. COLACE [Concomitant]
     Active Substance: DOCUSATE SODIUM
     Indication: CONSTIPATION
     Dates: start: 20130404, end: 20130409
  4. FRESH FROZEN PLASMA [Concomitant]
     Active Substance: HUMAN PLASMA
     Dates: start: 20130330, end: 20130418
  5. IBRUTINIB [Suspect]
     Active Substance: IBRUTINIB
     Indication: CHRONIC LYMPHOCYTIC LEUKAEMIA
     Route: 048
     Dates: start: 20130509
  6. VANCOMYCIN [Concomitant]
     Active Substance: VANCOMYCIN
     Indication: BACTERAEMIA
     Route: 042
     Dates: start: 20130403
  7. AUGMENTIN [Concomitant]
     Active Substance: AMOXICILLIN\CLAVULANATE POTASSIUM
     Indication: OROPHARYNGEAL PAIN
     Route: 048
     Dates: start: 201303, end: 201304
  8. BIOTENE (PASTE) [Concomitant]
     Active Substance: SODIUM MONOFLUOROPHOSPHATE
     Indication: MUCOSAL INFLAMMATION
     Dosage: 1 SWISH PILL SPLIT, PRN
     Route: 002
     Dates: start: 20130402, end: 20130409
  9. FORTAZ [Concomitant]
     Active Substance: CEFTAZIDIME SODIUM
     Indication: ALPHA HAEMOLYTIC STREPTOCOCCAL INFECTION
     Dates: start: 20130401, end: 20130405
  10. VANCOMYCIN [Concomitant]
     Active Substance: VANCOMYCIN
     Indication: ALPHA HAEMOLYTIC STREPTOCOCCAL INFECTION
     Route: 042
  11. NYSTATIN. [Concomitant]
     Active Substance: NYSTATIN
     Indication: CANDIDA INFECTION
  12. PLATELETS [Concomitant]
     Active Substance: HUMAN PLATELET, ALLOGENIC
     Dates: start: 20130330, end: 20130406
  13. IBRUTINIB [Suspect]
     Active Substance: IBRUTINIB
     Indication: CHRONIC LYMPHOCYTIC LEUKAEMIA
     Route: 048
     Dates: start: 20130422, end: 20130423
  14. VANCOMYCIN [Concomitant]
     Active Substance: VANCOMYCIN
     Indication: BACTERAEMIA
     Route: 042
  15. MICAFUNGIN. [Concomitant]
     Active Substance: MICAFUNGIN SODIUM
     Indication: PROPHYLAXIS
     Route: 042
     Dates: start: 20130411
  16. DILAUDID [Concomitant]
     Active Substance: HYDROMORPHONE HYDROCHLORIDE
  17. ALLOPURINOL. [Concomitant]
     Active Substance: ALLOPURINOL
     Indication: TUMOUR LYSIS SYNDROME
     Route: 048
     Dates: start: 20130319
  18. OXYCODONE [Concomitant]
     Active Substance: OXYCODONE
     Indication: HAEMATOMA
     Route: 048
     Dates: start: 201304
  19. OXYCODONE [Concomitant]
     Active Substance: OXYCODONE
     Indication: PAIN
     Route: 048
     Dates: start: 20130405, end: 20130503
  20. POTASSIUM CITRATE. [Concomitant]
     Active Substance: POTASSIUM CITRATE
     Route: 048
     Dates: start: 201303, end: 20131027
  21. PROTONIX [Concomitant]
     Active Substance: PANTOPRAZOLE SODIUM
     Dates: start: 20130401, end: 20131027
  22. ANCEF [Concomitant]
     Active Substance: CEFAZOLIN SODIUM
     Indication: ALPHA HAEMOLYTIC STREPTOCOCCAL INFECTION
     Dates: start: 20130401, end: 20130403
  23. IBRUTINIB [Suspect]
     Active Substance: IBRUTINIB
     Indication: CHRONIC LYMPHOCYTIC LEUKAEMIA
     Dosage: CUMULATIVE DOSE WAS 2940MG TO FIRST REACTION
     Route: 048
     Dates: start: 20130405, end: 20130411
  24. VANCOMYCIN [Concomitant]
     Active Substance: VANCOMYCIN
     Indication: ALPHA HAEMOLYTIC STREPTOCOCCAL INFECTION
     Route: 042
     Dates: start: 20130403
  25. PACKED RED BLOOD CELLS [Concomitant]
     Active Substance: HUMAN RED BLOOD CELL
     Dates: start: 20130329, end: 20130418
  26. ALLOPURINOL. [Concomitant]
     Active Substance: ALLOPURINOL
     Indication: NEPHROLITHIASIS
     Route: 048
     Dates: start: 20130319
  27. OXYCODONE [Concomitant]
     Active Substance: OXYCODONE
     Indication: PAIN
     Route: 048
     Dates: start: 20130405, end: 20130503
  28. BENADRYL [Concomitant]
     Active Substance: DIPHENHYDRAMINE HYDROCHLORIDE
     Indication: TRANSFUSION RELATED COMPLICATION
     Route: 042
     Dates: start: 20130402, end: 20130409
  29. LASIX [Concomitant]
     Active Substance: FUROSEMIDE
     Indication: PROPHYLAXIS
     Dates: start: 20130405, end: 20130405
  30. KAYEXALATE [Concomitant]
     Active Substance: SODIUM POLYSTYRENE SULFONATE
     Indication: HYPERKALAEMIA
     Dates: start: 20130405, end: 20130405
  31. TYLENOL [Concomitant]
     Active Substance: ACETAMINOPHEN
     Indication: PAIN PROPHYLAXIS
     Dates: start: 20130401, end: 20130409
  32. OXYCODONE [Concomitant]
     Active Substance: OXYCODONE
     Indication: PAIN
     Route: 048
     Dates: start: 201304
  33. FACTOR VIIA [Concomitant]
     Dates: start: 20130427, end: 20130427
  34. ANCEF [Concomitant]
     Active Substance: CEFAZOLIN SODIUM
     Indication: PYREXIA
     Dates: start: 20130401, end: 20130403
  35. TYLENOL [Concomitant]
     Active Substance: ACETAMINOPHEN
     Indication: PYREXIA
     Dates: start: 20130401, end: 20130409

REACTIONS (6)
  - Hyperkalaemia [Recovered/Resolved]
  - Gastroenteritis clostridial [Recovered/Resolved]
  - Pyrexia [Recovered/Resolved]
  - Spontaneous haematoma [Recovered/Resolved]
  - Haemolytic anaemia [Recovered/Resolved]
  - Coagulopathy [Recovered/Resolved]

NARRATIVE: CASE EVENT DATE: 20130411
